FAERS Safety Report 7720312-3 (Version None)
Quarter: 2011Q3

REPORT INFORMATION
  Report Type: 
  Country: None (occurrence: None)
  Receive Date: 20110831
  Receipt Date: 20110830
  Transmission Date: 20111222
  Serious: No
  Sender: FDA-Public Use
  Company Number: US-PFIZER INC-2011202271

PATIENT
  Sex: Male

DRUGS (4)
  1. MALARONE [Concomitant]
     Indication: LYME DISEASE
     Dosage: 250/100 MG, 2X/DAY
     Route: 048
  2. AZITHROMYCIN [Concomitant]
     Indication: LYME DISEASE
     Dosage: 500 MG, DAILY
  3. AMOXICILLIN [Concomitant]
     Indication: LYME DISEASE
     Dosage: 7000 MG, 2X/DAY
     Route: 048
  4. LYRICA [Suspect]
     Indication: FIBROMYALGIA
     Dosage: 75 MG, 3X/DAY
     Route: 048
     Dates: start: 20110526

REACTIONS (1)
  - HEADACHE [None]
